FAERS Safety Report 16078648 (Version 2)
Quarter: 2019Q2

REPORT INFORMATION
  Report Type: Spontaneous
  Country: US (occurrence: US)
  Receive Date: 20190315
  Receipt Date: 20190412
  Transmission Date: 20190711
  Serious: Yes (Hospitalization)
  Sender: FDA-Public Use
  Company Number: US-JNJFOC-20190239145

PATIENT
  Age: 72 Year
  Sex: Male
  Weight: 83.92 kg

DRUGS (5)
  1. XARELTO [Suspect]
     Active Substance: RIVAROXABAN
     Indication: BLOOD DISORDER
     Route: 048
     Dates: start: 201807, end: 201902
  2. XARELTO [Suspect]
     Active Substance: RIVAROXABAN
     Indication: BLOOD DISORDER
     Route: 048
     Dates: start: 201807, end: 201807
  3. METFORMIN [Concomitant]
     Active Substance: METFORMIN HYDROCHLORIDE
     Route: 065
  4. XARELTO [Suspect]
     Active Substance: RIVAROXABAN
     Indication: HEART VALVE REPLACEMENT
     Route: 048
     Dates: start: 201807, end: 201807
  5. XARELTO [Suspect]
     Active Substance: RIVAROXABAN
     Indication: HEART VALVE REPLACEMENT
     Route: 048
     Dates: start: 201807, end: 201902

REACTIONS (5)
  - Urticaria [Recovering/Resolving]
  - Contraindicated product administered [Unknown]
  - Skin laceration [Unknown]
  - Off label use [Unknown]
  - Product label issue [Unknown]

NARRATIVE: CASE EVENT DATE: 201807
